FAERS Safety Report 22143966 (Version 5)
Quarter: 2023Q2

REPORT INFORMATION
  Report Type: Spontaneous
  Country: US (occurrence: US)
  Receive Date: 20230327
  Receipt Date: 20230616
  Transmission Date: 20230721
  Serious: No
  Sender: FDA-Public Use
  Company Number: US-BRISTOL-MYERS SQUIBB COMPANY-2023-042912

PATIENT
  Age: 58 Year
  Sex: Male

DRUGS (5)
  1. POMALYST [Suspect]
     Active Substance: POMALIDOMIDE
     Indication: Plasma cell myeloma
     Dosage: FREQ -TAKE 1 CAPSULE BY MOUTH EVERY DAY WITH 7 DAY REST PERIOD
     Route: 048
     Dates: start: 20230224
  2. POMALYST [Suspect]
     Active Substance: POMALIDOMIDE
     Dosage: FREQUENCY: TAKE 1 CAPSULE BY MOUTH DAILY (FOR 21 DAYS) FOLLOWED BY 7-DAY REST PERIOD
     Route: 048
     Dates: start: 20230428
  3. DULOXETINE [Concomitant]
     Active Substance: DULOXETINE
     Indication: Product used for unknown indication
  4. OMEPRAZOLE [Concomitant]
     Active Substance: OMEPRAZOLE
     Indication: Product used for unknown indication
  5. OMEPRAZOLE [Concomitant]
     Active Substance: OMEPRAZOLE
     Indication: Product used for unknown indication

REACTIONS (7)
  - Fatigue [Unknown]
  - Respiratory tract infection [Unknown]
  - Nerve injury [Unknown]
  - Paraesthesia [Unknown]
  - Cough [Unknown]
  - Platelet count decreased [Unknown]
  - Diarrhoea [Unknown]
